FAERS Safety Report 8487953-X (Version None)
Quarter: 2012Q3

REPORT INFORMATION
  Report Type: 
  Country: None (occurrence: None)
  Receive Date: 20120705
  Receipt Date: 20110623
  Transmission Date: 20120928
  Serious: No
  Sender: FDA-Public Use
  Company Number: US-FOUGERA-2012FO000227

PATIENT
  Age: 55 Year
  Sex: Male

DRUGS (1)
  1. BETAMETHASONE DIPROPIONATE [Suspect]
     Indication: SKIN DISORDER
     Route: 061
     Dates: start: 20070601, end: 20110601

REACTIONS (2)
  - THERAPEUTIC RESPONSE DECREASED [None]
  - DRY EYE [None]
